FAERS Safety Report 21732999 (Version 2)
Quarter: 2023Q2

REPORT INFORMATION
  Report Type: Spontaneous
  Country: US (occurrence: US)
  Receive Date: 20221215
  Receipt Date: 20230503
  Transmission Date: 20230721
  Serious: No
  Sender: FDA-Public Use
  Company Number: US-SA-SAC20221214000869

PATIENT
  Age: 61 Year
  Sex: Male
  Weight: 113.38 kg

DRUGS (1)
  1. DUPIXENT [Suspect]
     Active Substance: DUPILUMAB
     Indication: Dyshidrotic eczema
     Dosage: 300 MG, QOW
     Route: 058
     Dates: start: 202209

REACTIONS (4)
  - Arthritis [Unknown]
  - Injury associated with device [Unknown]
  - Product use in unapproved indication [Unknown]
  - Accidental exposure to product [Unknown]
